FAERS Safety Report 4851575-X (Version None)
Quarter: 2005Q4

REPORT INFORMATION
  Report Type: 
  Country: None (occurrence: None)
  Receive Date: 20051212
  Receipt Date: 20051123
  Transmission Date: 20060501
  Serious: Yes (Other)
  Sender: FDA-Public Use
  Company Number: AU-ROCHE-426007

PATIENT
  Age: 44 Year
  Sex: Male

DRUGS (7)
  1. CEFTRIAXONE SODIUM [Suspect]
     Indication: DRUG USE FOR UNKNOWN INDICATION
     Route: 065
     Dates: start: 20030301, end: 20030302
  2. PHENYTOIN SODIUM [Suspect]
     Route: 048
     Dates: start: 20030227, end: 20030308
  3. FLOXACILLIN SODIUM [Suspect]
     Indication: DRUG USE FOR UNKNOWN INDICATION
     Route: 065
     Dates: start: 20030228, end: 20030301
  4. MORPHINE [Concomitant]
  5. PARACETAMOL [Concomitant]
  6. COLOXYL WITH SENNA [Concomitant]
  7. VANCOMYCIN [Concomitant]

REACTIONS (6)
  - ALANINE AMINOTRANSFERASE INCREASED [None]
  - CATHETER SITE INFECTION [None]
  - DIZZINESS [None]
  - GAMMA-GLUTAMYLTRANSFERASE INCREASED [None]
  - HEADACHE [None]
  - LIVER FUNCTION TEST ABNORMAL [None]
